FAERS Safety Report 9225164 (Version 1)
Quarter: 2013Q2

REPORT INFORMATION
  Report Type: Spontaneous
  Country: US (occurrence: US)
  Receive Date: 20130411
  Receipt Date: 20130411
  Transmission Date: 20140414
  Serious: No
  Sender: FDA-Public Use
  Company Number: US-PFIZER INC-2013109351

PATIENT
  Sex: Female

DRUGS (1)
  1. TRIAZOLAM [Suspect]
     Dosage: 0.25MG 1-2 TABLETS AT NIGHT

REACTIONS (2)
  - Fatigue [Unknown]
  - Chest discomfort [Unknown]
